FAERS Safety Report 11927415 (Version 2)
Quarter: 2016Q1

REPORT INFORMATION
  Report Type: Spontaneous
  Country: US (occurrence: US)
  Receive Date: 20160119
  Receipt Date: 20160127
  Transmission Date: 20160526
  Serious: No
  Sender: FDA-Public Use
  Company Number: US-BAYER-2016-010640

PATIENT
  Age: 85 Year
  Sex: Male
  Weight: 86.17 kg

DRUGS (11)
  1. MIRALAX [Suspect]
     Active Substance: POLYETHYLENE GLYCOL 3350
     Indication: CONSTIPATION
     Dosage: 1 DF, PRN
     Route: 048
     Dates: start: 2014
  2. METAPRON [Concomitant]
  3. FISH OIL [Concomitant]
     Active Substance: FISH OIL
  4. BAYER LOW DOSE [Concomitant]
     Active Substance: ASPIRIN
     Indication: ISCHAEMIC HEART DISEASE PROPHYLAXIS
  5. COUMADIN [Concomitant]
     Active Substance: WARFARIN SODIUM
  6. FINASTERIDE. [Concomitant]
     Active Substance: FINASTERIDE
  7. VITAMIN B12 [Concomitant]
     Active Substance: CYANOCOBALAMIN
  8. VITAMIN C [Concomitant]
     Active Substance: ASCORBIC ACID
  9. SIMVASTATIN. [Concomitant]
     Active Substance: SIMVASTATIN
  10. WARFARIN [Concomitant]
     Active Substance: WARFARIN
  11. AMIODARON [Concomitant]
     Active Substance: AMIODARONE

REACTIONS (2)
  - Penile burning sensation [None]
  - Anorectal discomfort [None]

NARRATIVE: CASE EVENT DATE: 20160117
